FAERS Safety Report 16706985 (Version 2)
Quarter: 2019Q3

REPORT INFORMATION
  Report Type: Spontaneous
  Country: US (occurrence: US)
  Receive Date: 20190815
  Receipt Date: 20190917
  Transmission Date: 20191004
  Serious: Yes (Other)
  Sender: FDA-Public Use
  Company Number: US-JUBILANT CADISTA PHARMACEUTICALS-2019JUB00301

PATIENT
  Sex: Female
  Weight: 62.13 kg

DRUGS (3)
  1. PANTOPRAZOLE SODIUM. [Suspect]
     Active Substance: PANTOPRAZOLE SODIUM
     Indication: COELIAC DISEASE
     Dosage: 40 MG, 2X/DAY
     Route: 048
  2. PANTOPRAZOLE SODIUM. [Suspect]
     Active Substance: PANTOPRAZOLE SODIUM
     Indication: GASTROINTESTINAL DISORDER
  3. ^A LOT OF MEDICATIONS^ (UNSPECIFIED) [Concomitant]

REACTIONS (5)
  - Off label use [Recovered/Resolved]
  - Excessive cerumen production [Recovered/Resolved]
  - Ear pain [Recovered/Resolved]
  - Tinnitus [Not Recovered/Not Resolved]
  - Deafness [Not Recovered/Not Resolved]
